FAERS Safety Report 4383306-4 (Version None)
Quarter: 2004Q2

REPORT INFORMATION
  Report Type: 
  Country: None (occurrence: None)
  Receive Date: 20040618
  Receipt Date: 20040601
  Transmission Date: 20050107
  Serious: Yes (Death)
  Sender: FDA-Public Use
  Company Number: US_0406103432

PATIENT
  Age: 65 Year

DRUGS (3)
  1. OLANZAPINE [Suspect]
  2. MIRTAZAPINE [Concomitant]
  3. LISINOPRIL [Concomitant]

REACTIONS (2)
  - MULTIPLE DRUG OVERDOSE [None]
  - THERAPEUTIC AGENT TOXICITY [None]
